FAERS Safety Report 26050574 (Version 4)
Quarter: 2025Q4

REPORT INFORMATION
  Report Type: Spontaneous
  Country: US (occurrence: US)
  Receive Date: 20251116
  Receipt Date: 20251221
  Transmission Date: 20260118
  Serious: No
  Sender: BOEHRINGER INGELHEIM
  Company Number: US-Komodo Health-a23aa00000BzvXhAAJ

PATIENT
  Sex: Female

DRUGS (3)
  1. SPIRIVA [Suspect]
     Active Substance: TIOTROPIUM BROMIDE MONOHYDRATE
     Indication: Chronic obstructive pulmonary disease
     Dosage: 1PUFF, LOT NUMBERS 405635 WITH EXPIRATION DATE OF APR2026, 404036 WITH? EXPIRATION DATE OF JAN2026, 304349 WITH EXPIRATION DATE OF JAN2025, AND 403146 WITH EXPIRATION DATE OF NOV2025.
  2. WIXELA INHUB [Concomitant]
     Active Substance: FLUTICASONE PROPIONATE\SALMETEROL XINAFOATE
     Indication: Chronic obstructive pulmonary disease
     Dosage: MORNING AND NIGHT
  3. ALBUTEROL [Concomitant]
     Active Substance: ALBUTEROL
     Indication: Chronic obstructive pulmonary disease
     Dosage: AS NEEDED

REACTIONS (2)
  - Product physical issue [Unknown]
  - Extra dose administered [Unknown]
